FAERS Safety Report 15606187 (Version 1)
Quarter: 2018Q4

REPORT INFORMATION
  Report Type: Other
  Country: IN (occurrence: IN)
  Receive Date: 20181112
  Receipt Date: 20181112
  Transmission Date: 20190205
  Serious: Yes (Other)
  Sender: FDA-Public Use
  Company Number: IN-DEXPHARM-20180878

PATIENT
  Age: 44 Year
  Sex: Male

DRUGS (6)
  1. LITHIUM. [Concomitant]
     Active Substance: LITHIUM
     Dosage: DAILY DOSE: 900 MG MILLGRAM(S) EVERY 8 HOURS
  2. BENZHEXOL [Concomitant]
     Active Substance: TRIHEXYPHENIDYL
  3. RISPERIDONE. [Suspect]
     Active Substance: RISPERIDONE
  4. OMEPRAZOLE. [Suspect]
     Active Substance: OMEPRAZOLE
     Dosage: DAILY DOSE: 20 MG MILLGRAM(S) EVERY 12 HOURS
  5. SODIUM VALPROATE [Suspect]
     Active Substance: VALPROATE SODIUM
     Dosage: FREQUENCY 2-1-1 PER DAY
  6. LORAZEPAM. [Concomitant]
     Active Substance: LORAZEPAM

REACTIONS (1)
  - Oedema peripheral [Recovered/Resolved]
